FAERS Safety Report 9648175 (Version 1)
Quarter: 2013Q4

REPORT INFORMATION
  Report Type: Spontaneous
  Country: AU (occurrence: AU)
  Receive Date: 20131028
  Receipt Date: 20131028
  Transmission Date: 20140711
  Serious: Yes (Hospitalization, Other)
  Sender: FDA-Public Use
  Company Number: PHHY2013AU119763

PATIENT
  Age: 83 Year
  Sex: Male

DRUGS (7)
  1. ACLASTA [Suspect]
     Dosage: 5 MG, UNK
     Route: 042
     Dates: start: 20101110
  2. ACLASTA [Suspect]
     Dosage: 5 MG, UNK
     Route: 042
     Dates: start: 20111126
  3. ACLASTA [Suspect]
     Dosage: 5 MG, UNK
     Route: 042
     Dates: start: 20121113
  4. ASASANTIN - SLOW RELEASE [Concomitant]
     Indication: CEREBROVASCULAR ACCIDENT
     Dosage: UNK UKN, BD
     Route: 048
     Dates: start: 20121025
  5. ATORVASTATIN [Concomitant]
     Indication: HYPERLIPIDAEMIA
     Dosage: 80 MG, DAILY
     Route: 048
     Dates: start: 20121025
  6. PREDNISONE [Concomitant]
     Indication: POLYMYALGIA RHEUMATICA
     Dosage: 5 MG, DAILY
     Route: 048
     Dates: start: 19990709
  7. SOMAC [Concomitant]
     Indication: GASTROOESOPHAGEAL REFLUX DISEASE
     Dosage: 40 MG, BD
     Route: 048
     Dates: start: 20111121

REACTIONS (2)
  - Hiatus hernia [Recovered/Resolved]
  - Volvulus [Recovered/Resolved]
